FAERS Safety Report 10272482 (Version 1)
Quarter: 2014Q2

REPORT INFORMATION
  Report Type: Spontaneous
  Country: US (occurrence: None)
  Receive Date: 20140627
  Receipt Date: 20140627
  Transmission Date: 20141212
  Serious: Yes (Hospitalization)
  Sender: FDA-Public Use
  Company Number: US-H14001-14-00131

PATIENT
  Age: 30 Year
  Sex: Female

DRUGS (3)
  1. PROPYLTHIOURACIL [Suspect]
     Indication: SECONDARY HYPERTHYROIDISM
  2. PROPYLTHIOURACIL [Suspect]
     Indication: BASEDOW^S DISEASE
  3. PROPRANOLOL (PROPRANOLOL) (PROPRANOLOL) [Concomitant]

REACTIONS (5)
  - Thyrotoxic crisis [None]
  - Hypersensitivity [None]
  - Angioedema [None]
  - Post procedural complication [None]
  - Hypocalcaemia [None]
